FAERS Safety Report 17238076 (Version 1)
Quarter: 2020Q1

REPORT INFORMATION
  Report Type: Spontaneous
  Country: US (occurrence: US)
  Receive Date: 20200106
  Receipt Date: 20200106
  Transmission Date: 20200409
  Serious: Yes (Hospitalization)
  Sender: FDA-Public Use
  Company Number: US-PACIRA-201900233

PATIENT
  Age: 56 Year
  Sex: Female
  Weight: 61 kg

DRUGS (1)
  1. EXPAREL [Suspect]
     Active Substance: BUPIVACAINE
     Indication: LOCAL ANAESTHESIA
     Dosage: 226 MG MIXED WITH 20 ML STERILE SALINE
     Route: 058
     Dates: start: 20190513

REACTIONS (1)
  - Local anaesthetic systemic toxicity [Not Recovered/Not Resolved]

NARRATIVE: CASE EVENT DATE: 20190513
